FAERS Safety Report 20853455 (Version 2)
Quarter: 2022Q2

REPORT INFORMATION
  Report Type: Spontaneous
  Country: CH (occurrence: CH)
  Receive Date: 20220520
  Receipt Date: 20220628
  Transmission Date: 20220721
  Serious: Yes (Hospitalization, Other)
  Sender: FDA-Public Use
  Company Number: None

PATIENT
  Age: 42 Year
  Sex: Female

DRUGS (9)
  1. LORAZEPAM [Suspect]
     Active Substance: LORAZEPAM
     Indication: Catatonia
     Dosage: 2.5 MG, 3X/DAY
     Dates: start: 20220308
  2. LITHIUM SULFATE [Suspect]
     Active Substance: LITHIUM SULFATE
     Dosage: 18 MMOL
     Dates: start: 201410, end: 202007
  3. LITHIUM SULFATE [Suspect]
     Active Substance: LITHIUM SULFATE
     Dosage: 990 MG
     Dates: end: 202203
  4. LITHIUM SULFATE [Suspect]
     Active Substance: LITHIUM SULFATE
     Dosage: 6 MMOL
     Dates: start: 202203, end: 20220324
  5. LITHIUM SULFATE [Suspect]
     Active Substance: LITHIUM SULFATE
     Dosage: 9 MMOL
     Dates: start: 20220325, end: 20220327
  6. LITHIUM SULFATE [Suspect]
     Active Substance: LITHIUM SULFATE
     Dosage: 12 MMOL, DAILY
     Dates: start: 20220328
  7. AMISULPRIDE [Suspect]
     Active Substance: AMISULPRIDE
     Dates: end: 20220308
  8. LEVOTHYROXINE [Concomitant]
     Active Substance: LEVOTHYROXINE
     Dosage: IN THE MORNING
  9. DIAZEPAM [Concomitant]
     Active Substance: DIAZEPAM
     Dosage: UNK

REACTIONS (10)
  - Catatonia [Not Recovered/Not Resolved]
  - Altered state of consciousness [Not Recovered/Not Resolved]
  - Psychomotor retardation [Not Recovered/Not Resolved]
  - Thinking abnormal [Unknown]
  - Stupor [Unknown]
  - Mental disorder [Unknown]
  - Dehydration [Unknown]
  - Therapeutic response decreased [Unknown]
  - Off label use [Unknown]
  - Drug ineffective [Unknown]

NARRATIVE: CASE EVENT DATE: 20220308
